FAERS Safety Report 7120061-9 (Version None)
Quarter: 2010Q4

REPORT INFORMATION
  Report Type: 
  Country: None (occurrence: None)
  Receive Date: 20101123
  Receipt Date: 20101117
  Transmission Date: 20110411
  Serious: Yes (Death)
  Sender: FDA-Public Use
  Company Number: VE-PFIZER INC-2010150957

PATIENT
  Age: 87 Year
  Sex: Male

DRUGS (2)
  1. NORVASC [Suspect]
     Dosage: 5 MG, 1X/DAY
     Route: 048
     Dates: start: 20080101
  2. ASPIRIN [Concomitant]
     Indication: CIRCULATING ANTICOAGULANT
     Dosage: 100 MG, ALTERNATE DAY
     Route: 048
     Dates: start: 20090101

REACTIONS (1)
  - RESPIRATORY ARREST [None]
